FAERS Safety Report 8301349-2 (Version None)
Quarter: 2012Q2

REPORT INFORMATION
  Report Type: 
  Country: None (occurrence: None)
  Receive Date: 20120420
  Receipt Date: 20120416
  Transmission Date: 20120825
  Serious: Yes (Hospitalization)
  Sender: FDA-Public Use
  Company Number: US-B.I. PHARMACEUTICALS,INC./RIDGEFIELD-2012-BP-07244BP

PATIENT
  Sex: Male

DRUGS (13)
  1. SIMVASTATIN [Concomitant]
     Indication: BLOOD CHOLESTEROL INCREASED
     Dosage: 20 MG
     Route: 048
  2. BENADRYL [Concomitant]
     Indication: SEASONAL ALLERGY
     Dosage: 25 MG
     Route: 048
  3. COUMADIN [Suspect]
     Indication: ATRIAL FIBRILLATION
     Dosage: 4 MG
     Route: 048
     Dates: start: 20110801
  4. SYMBICORT [Concomitant]
     Indication: CHRONIC OBSTRUCTIVE PULMONARY DISEASE
     Route: 055
  5. PRADAXA [Suspect]
     Indication: ATRIAL FIBRILLATION
     Dosage: 300 MG
     Route: 048
     Dates: start: 20110101, end: 20110801
  6. ALBUTEROL [Concomitant]
     Indication: CHRONIC OBSTRUCTIVE PULMONARY DISEASE
     Route: 055
  7. OMEPRAZOLE [Concomitant]
     Indication: FLATULENCE
     Dosage: 20 MG
     Route: 048
  8. FLAX SEED [Concomitant]
     Indication: CONSTIPATION
     Route: 048
  9. IRON [Concomitant]
     Indication: ROUTINE HEALTH MAINTENANCE
     Dosage: 45 MG
     Route: 048
  10. VITAMIN B-12 [Concomitant]
     Indication: ROUTINE HEALTH MAINTENANCE
     Dosage: 1000 MG
     Route: 048
  11. VENTOLIN HFA [Concomitant]
     Indication: CHRONIC OBSTRUCTIVE PULMONARY DISEASE
     Route: 055
  12. OXYGEN [Concomitant]
     Indication: CHRONIC OBSTRUCTIVE PULMONARY DISEASE
     Route: 045
  13. LASIX [Concomitant]
     Indication: JOINT SWELLING
     Dosage: 240 MG
     Route: 048

REACTIONS (6)
  - HAEMORRHAGE [None]
  - GASTRITIS [None]
  - GASTRIC ULCER [None]
  - MELAENA [None]
  - ABNORMAL FAECES [None]
  - ASTHENIA [None]
